FAERS Safety Report 10176203 (Version 1)
Quarter: 2014Q2

REPORT INFORMATION
  Report Type: Spontaneous
  Country: IT (occurrence: IT)
  Receive Date: 20140516
  Receipt Date: 20140516
  Transmission Date: 20141212
  Serious: Yes (Hospitalization)
  Sender: FDA-Public Use
  Company Number: IT-RANBAXY-2014RR-81137

PATIENT
  Age: 53 Year
  Sex: Female

DRUGS (1)
  1. AMOXICILLIN/CLAVULANIC ACID [Suspect]
     Indication: BRONCHITIS
     Dosage: 1 G COMPLETE
     Route: 048
     Dates: start: 20131023, end: 20131023

REACTIONS (3)
  - Dyspnoea [Unknown]
  - Pruritus [Unknown]
  - Rash macular [Unknown]
